FAERS Safety Report 5238907-8 (Version None)
Quarter: 2007Q1

REPORT INFORMATION
  Report Type: 
  Country: None (occurrence: None)
  Receive Date: 20070215
  Receipt Date: 20070208
  Transmission Date: 20070707
  Serious: Yes (Death)
  Sender: FDA-Public Use
  Company Number: IN-PFIZER INC-2007011161

PATIENT
  Age: 24 Year
  Sex: Female

DRUGS (2)
  1. DAXID [Suspect]
     Indication: POSTPARTUM DEPRESSION
     Dosage: DAILY DOSE:50MG
     Route: 048
  2. CHLORDIAZEPOXIDE [Concomitant]

REACTIONS (1)
  - EPILEPSY [None]
